FAERS Safety Report 5228567-4 (Version None)
Quarter: 2007Q1

REPORT INFORMATION
  Report Type: 
  Country: None (occurrence: None)
  Receive Date: 20070205
  Receipt Date: 20070125
  Transmission Date: 20070707
  Serious: Yes (Hospitalization)
  Sender: FDA-Public Use
  Company Number: JP-AMGEN-US208386

PATIENT
  Sex: Female

DRUGS (19)
  1. PANITUMUMAB [Suspect]
     Indication: COLORECTAL CANCER
     Route: 042
     Dates: start: 20060116
  2. CANDESARTAN CILEXETIL [Concomitant]
     Route: 065
     Dates: start: 20060209
  3. FAMOTIDINE [Concomitant]
     Route: 065
     Dates: start: 20060324
  4. MINOCYCLINE HCL [Concomitant]
     Route: 065
     Dates: start: 20061227
  5. RIBOFLAVIN TAB [Concomitant]
     Route: 065
     Dates: start: 20061213
  6. PYDOXAL [Concomitant]
     Route: 065
     Dates: start: 20061213
  7. MAGNESIUM OXIDE [Concomitant]
     Route: 065
     Dates: start: 20041125
  8. PURSENNID [Concomitant]
     Route: 065
     Dates: start: 20041127
  9. LAXOBERON [Concomitant]
     Route: 054
     Dates: start: 20050210
  10. OXYCONTIN [Concomitant]
     Route: 065
     Dates: start: 20061108
  11. MORPHINE [Concomitant]
     Route: 065
     Dates: start: 20061108
  12. LOXOPROFEN SODIUM [Concomitant]
     Route: 065
     Dates: start: 20060128
  13. CLONAZEPAM [Concomitant]
     Route: 065
     Dates: start: 20061106
  14. HIRUDOID [Concomitant]
     Route: 065
     Dates: start: 20061110
  15. DIFLORASONE DIACETATE [Concomitant]
     Route: 065
     Dates: start: 20061110
  16. ALCLOMETASONE DIPROPIONATE [Concomitant]
     Route: 065
     Dates: start: 20061122
  17. SELBEX [Concomitant]
     Route: 065
  18. AMOBAN [Concomitant]
     Route: 065
  19. POLIVITAMINE [Concomitant]
     Route: 065

REACTIONS (2)
  - ANAEMIA [None]
  - MALAISE [None]
